FAERS Safety Report 20628821 (Version 1)
Quarter: 2022Q1

REPORT INFORMATION
  Report Type: Spontaneous
  Country: CN (occurrence: CN)
  Receive Date: 20220323
  Receipt Date: 20220323
  Transmission Date: 20220424
  Serious: Yes (Hospitalization, Other)
  Sender: FDA-Public Use
  Company Number: CN-ABBVIE-22K-035-4327765-00

PATIENT
  Age: 34 Year
  Sex: Male
  Weight: 68 kg

DRUGS (1)
  1. VALPROATE SODIUM [Suspect]
     Active Substance: VALPROATE SODIUM
     Indication: Migraine
     Route: 048
     Dates: start: 20200726, end: 20200825

REACTIONS (3)
  - Drug-induced liver injury [Recovering/Resolving]
  - Off label use [Unknown]
  - Migraine [Unknown]

NARRATIVE: CASE EVENT DATE: 20200817
